FAERS Safety Report 11271090 (Version 3)
Quarter: 2015Q4

REPORT INFORMATION
  Report Type: Report from Study
  Country: BE (occurrence: BE)
  Receive Date: 20150714
  Receipt Date: 20151002
  Transmission Date: 20160304
  Serious: Yes (Hospitalization)
  Sender: FDA-Public Use
  Company Number: BE-BAYER-2015-371541

PATIENT
  Age: 71 Year
  Sex: Female
  Weight: 72 kg

DRUGS (3)
  1. ACENOCOUMAROL [Concomitant]
     Active Substance: ACENOCOUMAROL
     Dosage: UNK
  2. ADEMPAS [Suspect]
     Active Substance: RIOCIGUAT
     Indication: PULMONARY HYPERTENSION
     Dosage: UNK
     Dates: start: 20150508
  3. OXYGEN. [Concomitant]
     Active Substance: OXYGEN
     Dosage: 3 L/MIN
     Route: 055

REACTIONS (1)
  - Generalised oedema [Recovered/Resolved]

NARRATIVE: CASE EVENT DATE: 20150524
